FAERS Safety Report 7787001-0 (Version None)
Quarter: 2011Q3

REPORT INFORMATION
  Report Type: 
  Country: None (occurrence: None)
  Receive Date: 20110929
  Receipt Date: 20110919
  Transmission Date: 20111222
  Serious: Yes (Hospitalization)
  Sender: FDA-Public Use
  Company Number: US-CELGENEUS-163-21880-11092207

PATIENT
  Sex: Female

DRUGS (1)
  1. REVLIMID [Suspect]
     Indication: MULTIPLE MYELOMA
     Dosage: 10 MILLIGRAM
     Route: 048
     Dates: start: 20110701

REACTIONS (6)
  - NEUROPATHY PERIPHERAL [None]
  - AMYLOIDOSIS [None]
  - ABDOMINAL PAIN [None]
  - CONSTIPATION [None]
  - FALL [None]
  - SWELLING [None]
